FAERS Safety Report 18133152 (Version 1)
Quarter: 2020Q3

REPORT INFORMATION
  Report Type: Spontaneous
  Country: US (occurrence: US)
  Receive Date: 20200811
  Receipt Date: 20200811
  Transmission Date: 20201103
  Serious: No
  Sender: FDA-Public Use
  Company Number: US-GLENMARK PHARMACEUTICALS-2020GMK048231

PATIENT

DRUGS (1)
  1. CICLOPIROX GEL, 0.77% [Suspect]
     Active Substance: CICLOPIROX
     Indication: PRODUCT USED FOR UNKNOWN INDICATION
     Dosage: UNK
     Route: 061
     Dates: start: 202006, end: 202006

REACTIONS (3)
  - Application site pain [None]
  - Product administered at inappropriate site [Unknown]
  - Application site erythema [Unknown]

NARRATIVE: CASE EVENT DATE: 202006
